FAERS Safety Report 18316262 (Version 1)
Quarter: 2020Q3

REPORT INFORMATION
  Report Type: Spontaneous
  Country: US (occurrence: US)
  Receive Date: 20200927
  Receipt Date: 20200927
  Transmission Date: 20201103
  Serious: No
  Sender: FDA-Public Use
  Company Number: US-LUPIN PHARMACEUTICALS INC.-2020-01392

PATIENT

DRUGS (1)
  1. BUPROPION HYDROCHLORIDE XL [Suspect]
     Active Substance: BUPROPION HYDROCHLORIDE
     Indication: PRODUCT USED FOR UNKNOWN INDICATION
     Dosage: UNK
     Route: 065

REACTIONS (11)
  - Tension [Unknown]
  - Feeling abnormal [Unknown]
  - Anxiety [Unknown]
  - Irritability [Unknown]
  - Tremor [Unknown]
  - Drug ineffective [Unknown]
  - Somnolence [Unknown]
  - Anger [Unknown]
  - Product substitution issue [Unknown]
  - Adjustment disorder [None]
  - Tinnitus [Unknown]
